FAERS Safety Report 6037715-8 (Version None)
Quarter: 2009Q1

REPORT INFORMATION
  Report Type: 
  Country: None (occurrence: None)
  Receive Date: 20090114
  Receipt Date: 20090112
  Transmission Date: 20090719
  Serious: Yes (Other)
  Sender: FDA-Public Use
  Company Number: GB-ABBOTT-09P-167-0496955-00

PATIENT
  Sex: Female

DRUGS (4)
  1. NORVIR [Suspect]
     Indication: ANTIRETROVIRAL THERAPY
     Route: 048
     Dates: start: 20070608
  2. PREZISTA [Suspect]
     Indication: ANTIRETROVIRAL THERAPY
     Dosage: DAILY
     Route: 048
     Dates: start: 20060608
  3. RALTEGRAVIR [Suspect]
     Indication: ANTIRETROVIRAL THERAPY
     Dosage: DAILY
     Route: 048
     Dates: start: 20060608
  4. TMC 125 [Suspect]
     Indication: ANTIRETROVIRAL THERAPY
     Dosage: DAILY
     Route: 048
     Dates: start: 20070713

REACTIONS (2)
  - ABORTION SPONTANEOUS [None]
  - CHORIOAMNIONITIS [None]
